FAERS Safety Report 6437862-2 (Version None)
Quarter: 2009Q4

REPORT INFORMATION
  Report Type: 
  Country: None (occurrence: None)
  Receive Date: 20091112
  Receipt Date: 20091103
  Transmission Date: 20100525
  Serious: Yes (Hospitalization, Other)
  Sender: FDA-Public Use
  Company Number: US-AMGEN-QUU372834

PATIENT
  Sex: Male

DRUGS (2)
  1. ENBREL [Suspect]
     Indication: PSORIATIC ARTHROPATHY
     Route: 058
     Dates: start: 20040615
  2. ENBREL [Suspect]
     Indication: PSORIASIS

REACTIONS (7)
  - BONE GRAFT [None]
  - CARPAL TUNNEL SYNDROME [None]
  - HAEMATOMA [None]
  - LIMB OPERATION [None]
  - NEPHROLITHIASIS [None]
  - SHOULDER ARTHROPLASTY [None]
  - TENDON OPERATION [None]
